APPROVED DRUG PRODUCT: LACOSAMIDE
Active Ingredient: LACOSAMIDE
Strength: 10MG/ML
Dosage Form/Route: SOLUTION;ORAL
Application: A215379 | Product #001 | TE Code: AA
Applicant: MSN LABORATORIES PRIVATE LTD
Approved: Dec 22, 2023 | RLD: No | RS: No | Type: RX